FAERS Safety Report 8010053-X (Version None)
Quarter: 2011Q4

REPORT INFORMATION
  Report Type: 
  Country: None (occurrence: None)
  Receive Date: 20111221
  Receipt Date: 20111213
  Transmission Date: 20120403
  Serious: Yes (Hospitalization, Other)
  Sender: FDA-Public Use
  Company Number: AUR-APL-2011-06169

PATIENT
  Age: 62 Year
  Sex: Female

DRUGS (5)
  1. AMLODIPINE [Concomitant]
  2. ATORVASTATIN [Concomitant]
  3. OLMESARTAN MEDOXOMIL [Concomitant]
  4. METFORMIN HCL [Suspect]
     Indication: DIABETES MELLITUS
     Dosage: 2550 MG (850 MG, 3 IN 1 D),  UNKNOWN
  5. INSULIN [Concomitant]

REACTIONS (13)
  - DIARRHOEA [None]
  - ASPARTATE AMINOTRANSFERASE INCREASED [None]
  - VOMITING [None]
  - ALANINE AMINOTRANSFERASE INCREASED [None]
  - ANION GAP INCREASED [None]
  - NAUSEA [None]
  - RENAL FAILURE ACUTE [None]
  - BLOOD CULTURE POSITIVE [None]
  - RESPIRATORY RATE INCREASED [None]
  - STREPTOCOCCAL INFECTION [None]
  - ACUTE ABDOMEN [None]
  - BLOOD PRESSURE INCREASED [None]
  - LACTIC ACIDOSIS [None]
